FAERS Safety Report 8010318-1 (Version None)
Quarter: 2011Q4

REPORT INFORMATION
  Report Type: 
  Country: None (occurrence: None)
  Receive Date: 20111228
  Receipt Date: 20111220
  Transmission Date: 20120403
  Serious: Yes (Hospitalization, Other)
  Sender: FDA-Public Use
  Company Number: US-ASTELLAS-2011US008704

PATIENT
  Sex: Female

DRUGS (6)
  1. PROGRAF [Suspect]
     Dosage: 7 MG, UID/QD
     Route: 048
  2. PROGRAF [Suspect]
     Indication: RENAL TRANSPLANT
     Dosage: 4 MG, BID
     Route: 048
  3. PROGRAF [Suspect]
     Dosage: 5 MG, UID/QD
     Route: 048
  4. PREDNISONE TAB [Concomitant]
     Indication: PRODUCT USED FOR UNKNOWN INDICATION
     Dosage: 5 UNK, UNKNOWN/D
     Route: 065
     Dates: end: 20091001
  5. MYFORTIC [Concomitant]
     Indication: PRODUCT USED FOR UNKNOWN INDICATION
     Dosage: UNK
     Route: 062
     Dates: end: 20100301
  6. IMURAN [Concomitant]
     Indication: PRODUCT USED FOR UNKNOWN INDICATION
     Dosage: 50 MG, BID
     Route: 065

REACTIONS (26)
  - URINARY TRACT INFECTION [None]
  - ABDOMINAL PAIN [None]
  - TOXICITY TO VARIOUS AGENTS [None]
  - ESCHERICHIA URINARY TRACT INFECTION [None]
  - HYPOTENSION [None]
  - CYTOMEGALOVIRUS INFECTION [None]
  - PAIN [None]
  - TREATMENT NONCOMPLIANCE [None]
  - MATERNAL EXPOSURE DURING PREGNANCY [None]
  - PHOSPHORUS METABOLISM DISORDER [None]
  - PYELONEPHRITIS [None]
  - CONVULSION [None]
  - LYMPHOCELE [None]
  - RENAL DISORDER [None]
  - PNEUMONITIS [None]
  - HAEMANGIOMA [None]
  - HYPOVOLAEMIA [None]
  - NODULE [None]
  - STREPTOCOCCAL URINARY TRACT INFECTION [None]
  - RENAL IMPAIRMENT [None]
  - LIVER FUNCTION TEST ABNORMAL [None]
  - IRON DEFICIENCY ANAEMIA [None]
  - LEUKOPENIA [None]
  - BACTERIAL PYELONEPHRITIS [None]
  - VASCULAR GRAFT THROMBOSIS [None]
  - IMMUNOSUPPRESSANT DRUG LEVEL DECREASED [None]
